FAERS Safety Report 23570200 (Version 1)
Quarter: 2024Q1

REPORT INFORMATION
  Report Type: Spontaneous
  Country: US (occurrence: None)
  Receive Date: 20240226
  Receipt Date: 20240226
  Transmission Date: 20240409
  Serious: Yes (Other)
  Sender: FDA-Public Use
  Company Number: None

PATIENT
  Age: 8 Year
  Sex: Female
  Weight: 45 kg

DRUGS (4)
  1. MIRALAX [Suspect]
     Active Substance: POLYETHYLENE GLYCOL 3350
     Indication: Constipation
     Dosage: OTHER QUANTITY : 1 CAPFUL IN WATER;?FREQUENCY : AT BEDTIME;?
     Route: 048
     Dates: start: 20240110, end: 20240209
  2. PROBIOTICS NOS [Concomitant]
     Active Substance: PROBIOTICS NOS
  3. VITAMINS [Concomitant]
     Active Substance: VITAMINS
  4. FIBER [Concomitant]

REACTIONS (5)
  - Intestinal obstruction [None]
  - Tic [None]
  - Seizure [None]
  - Anger [None]
  - Agitation [None]

NARRATIVE: CASE EVENT DATE: 20240110
